FAERS Safety Report 4558758-7 (Version None)
Quarter: 2005Q1

REPORT INFORMATION
  Report Type: 
  Country: None (occurrence: None)
  Receive Date: 20050121
  Receipt Date: 20050110
  Transmission Date: 20050727
  Serious: Yes (Disabling)
  Sender: FDA-Public Use
  Company Number: US-JNJFOC-20040802294

PATIENT
  Age: 72 Year
  Sex: Female
  Weight: 83.92 kg

DRUGS (19)
  1. TOPAMAX [Suspect]
     Indication: HEADACHE
     Route: 049
     Dates: start: 20040719, end: 20040801
  2. HYDROCHLOROTHIAZIDE [Concomitant]
  3. PRIMIDONE [Concomitant]
  4. VIOXX [Concomitant]
  5. PREMARIN [Concomitant]
  6. PREVACID [Concomitant]
  7. GERITOL [Concomitant]
     Indication: VITAMIN SUPPLEMENTATION
  8. OSCAL [Concomitant]
  9. QUININE [Concomitant]
  10. NEURONTIN [Concomitant]
     Route: 065
  11. DARVOX [Concomitant]
     Indication: PAIN
  12. SINGULAIR [Concomitant]
  13. DOXAZOSIN [Concomitant]
  14. VERAPAMIL [Concomitant]
  15. ALBUTEROL [Concomitant]
  16. ATROVENT [Concomitant]
  17. SEROVENT [Concomitant]
  18. EROVENT [Concomitant]
  19. AMBIEN [Concomitant]

REACTIONS (7)
  - ABASIA [None]
  - ARTHRALGIA [None]
  - ASTHENIA [None]
  - CIRCULATORY COLLAPSE [None]
  - FALL [None]
  - MIGRAINE [None]
  - PAIN MANAGEMENT [None]
